FAERS Safety Report 8052431-9 (Version None)
Quarter: 2012Q1

REPORT INFORMATION
  Report Type: 
  Country: None (occurrence: None)
  Receive Date: 20120118
  Receipt Date: 20120113
  Transmission Date: 20120608
  Serious: Yes (Other)
  Sender: FDA-Public Use
  Company Number: US-PFIZER INC-2011147894

PATIENT
  Sex: Male

DRUGS (1)
  1. CHANTIX [Suspect]
     Indication: SMOKING CESSATION THERAPY
     Dosage: 0.5MG, THEN 1MG AS INSTRUCTED
     Dates: start: 20071201, end: 20080201

REACTIONS (10)
  - IMPAIRED DRIVING ABILITY [None]
  - MENTAL DISORDER [None]
  - NIGHTMARE [None]
  - DEPRESSION [None]
  - SUICIDAL IDEATION [None]
  - ABNORMAL BEHAVIOUR [None]
  - AGGRESSION [None]
  - INSOMNIA [None]
  - EMOTIONAL DISTRESS [None]
  - HEADACHE [None]
